FAERS Safety Report 17349928 (Version 3)
Quarter: 2022Q1

REPORT INFORMATION
  Report Type: Report from Study
  Country: CO (occurrence: CO)
  Receive Date: 20200130
  Receipt Date: 20220322
  Transmission Date: 20220423
  Serious: Yes (Other)
  Sender: FDA-Public Use
  Company Number: CO-NOVARTISPH-NVSC2020CO022296

PATIENT
  Age: 89 Year
  Sex: Female
  Weight: 56 kg

DRUGS (6)
  1. SANDOSTATIN LAR DEPOT [Suspect]
     Active Substance: OCTREOTIDE ACETATE
     Indication: Gastroenteropancreatic neuroendocrine tumour disease
     Dosage: UNK (AMPOULE)
     Route: 065
  2. SANDOSTATIN LAR DEPOT [Suspect]
     Active Substance: OCTREOTIDE ACETATE
     Dosage: 30 MG, QMO (AMPOULE)
     Route: 030
     Dates: start: 20220223
  3. SANDOSTATIN LAR DEPOT [Suspect]
     Active Substance: OCTREOTIDE ACETATE
     Dosage: UNK, Q2W (9 YEARS AGO)
     Route: 030
  4. ATORVASTATIN [Suspect]
     Active Substance: ATORVASTATIN
     Indication: Product used for unknown indication
     Dosage: 20 MG, QD (3 YEARS AGO)
     Route: 048
  5. FUROSEMIDE [Suspect]
     Active Substance: FUROSEMIDE
     Indication: Product used for unknown indication
     Dosage: 40 MG, QD (6 YEARS AGO)
     Route: 048
  6. ENALAPRIL [Concomitant]
     Active Substance: ENALAPRIL
     Indication: Hypertension
     Dosage: 20 MG, QD (6 YEARS AGO)
     Route: 048

REACTIONS (10)
  - Choking [Unknown]
  - Illness [Unknown]
  - Panic attack [Unknown]
  - Fear [Unknown]
  - Psychiatric symptom [Unknown]
  - Malaise [Unknown]
  - Somnolence [Unknown]
  - Arthralgia [Recovering/Resolving]
  - Gait disturbance [Recovered/Resolved]
  - Inappropriate schedule of product administration [Unknown]

NARRATIVE: CASE EVENT DATE: 20220201
